FAERS Safety Report 5308600-1 (Version None)
Quarter: 2007Q2

REPORT INFORMATION
  Report Type: 
  Country: None (occurrence: None)
  Receive Date: 20070426
  Receipt Date: 20070418
  Transmission Date: 20071010
  Serious: Yes (Other)
  Sender: FDA-Public Use
  Company Number: JP-MERCK-0704USA02055

PATIENT
  Age: 70 Year
  Sex: Male

DRUGS (8)
  1. HYZAAR [Suspect]
     Indication: HYPERTENSION
     Route: 048
     Dates: start: 20070109, end: 20070202
  2. HYZAAR [Suspect]
     Route: 048
     Dates: end: 20070219
  3. DETRUSITOL [Suspect]
     Indication: HYPERTONIC BLADDER
     Route: 048
     Dates: start: 20060821
  4. TRICOR [Suspect]
     Indication: HYPERLIPIDAEMIA
     Route: 048
     Dates: start: 20061110
  5. ALLOPURINOL [Suspect]
     Indication: HYPERURICAEMIA
     Route: 048
     Dates: start: 20061111
  6. MOBIC [Suspect]
     Indication: TENOSYNOVITIS
     Route: 048
     Dates: start: 20061110
  7. PEPCID RPD [Suspect]
     Indication: GASTRITIS
     Route: 048
     Dates: start: 20061110
  8. ADALAT [Suspect]
     Indication: HYPERTENSION
     Route: 048
     Dates: start: 20061207, end: 20070219

REACTIONS (2)
  - DANDRUFF [None]
  - DERMATITIS PSORIASIFORM [None]
